FAERS Safety Report 4300664-7 (Version None)
Quarter: 2004Q1

REPORT INFORMATION
  Report Type: 
  Country: None (occurrence: None)
  Receive Date: 20040217
  Receipt Date: 20040205
  Transmission Date: 20041129
  Serious: Yes (Hospitalization)
  Sender: FDA-Public Use
  Company Number: SE-JNJFOC-20031200303

PATIENT
  Age: 73 Year
  Sex: Female

DRUGS (10)
  1. RISPERDAL [Suspect]
     Indication: DRUG USE FOR UNKNOWN INDICATION
     Dosage: 1 + 2 MG, IN 1 DAY, ORAL
     Route: 048
     Dates: start: 20030201, end: 20030611
  2. RISPERDAL [Suspect]
     Indication: DRUG USE FOR UNKNOWN INDICATION
     Dosage: 1 + 2 MG, IN 1 DAY, ORAL
     Route: 048
     Dates: start: 20021203
  3. LASIX RETARD (FUROSEMIDE) CAPSULES [Concomitant]
  4. SELOKEN ZOC (METOPROLOL SUCCINATE) [Concomitant]
  5. ZOCORD (SIMVASTATIN) [Concomitant]
  6. LEVAXIN (LEVOTHYROXINE SODIUM) [Concomitant]
  7. WARAN (WARFARIN SODIUM) TABLETS [Concomitant]
  8. MONOKET (ISOSORBIDE MONONITRATE) TABLETS [Concomitant]
  9. TRIOBE (TRIOBE) [Concomitant]
  10. PANTOLOC (PANTOPRAZOLE) [Concomitant]

REACTIONS (10)
  - AKATHISIA [None]
  - ANAL DILATATION [None]
  - ANURIA [None]
  - BLOOD CREATININE INCREASED [None]
  - DIFFICULTY IN WALKING [None]
  - FAECAL INCONTINENCE [None]
  - MOBILITY DECREASED [None]
  - MUSCLE RIGIDITY [None]
  - POLYNEUROPATHY [None]
  - SPINAL DISORDER [None]
